FAERS Safety Report 13825210 (Version 1)
Quarter: 2017Q3

REPORT INFORMATION
  Report Type: Spontaneous
  Country: US (occurrence: US)
  Receive Date: 20170802
  Receipt Date: 20170802
  Transmission Date: 20171127
  Serious: No
  Sender: FDA-Public Use
  Company Number: US-ASTRAZENECA-2017SE77172

PATIENT
  Sex: Female
  Weight: 99.8 kg

DRUGS (7)
  1. SYNTTHORID [Concomitant]
     Indication: THYROID DISORDER
  2. DILTIAZEM. [Concomitant]
     Active Substance: DILTIAZEM
  3. FLECAINIDE [Concomitant]
     Active Substance: FLECAINIDE
  4. TRICOR [Concomitant]
     Active Substance: FENOFIBRATE
  5. BYDUREON [Suspect]
     Active Substance: EXENATIDE
     Indication: TYPE 2 DIABETES MELLITUS
     Route: 058
     Dates: start: 20170710
  6. JANUMET [Concomitant]
     Active Substance: METFORMIN HYDROCHLORIDE\SITAGLIPTIN PHOSPHATE
  7. WARFARIN [Concomitant]
     Active Substance: WARFARIN

REACTIONS (2)
  - Wrong technique in device usage process [Unknown]
  - Nervousness [Unknown]
